FAERS Safety Report 6733615-6 (Version None)
Quarter: 2010Q2

REPORT INFORMATION
  Report Type: 
  Country: None (occurrence: None)
  Receive Date: 20100520
  Receipt Date: 20100517
  Transmission Date: 20101027
  Serious: Yes (Death)
  Sender: FDA-Public Use
  Company Number: JP-SANOFI-AVENTIS-2010SA028196

PATIENT
  Age: 82 Year
  Sex: Male

DRUGS (3)
  1. TAXOTERE [Suspect]
     Indication: PROSTATE CANCER
     Dates: start: 20100301, end: 20100301
  2. TAXOTERE [Suspect]
     Dates: start: 20100401, end: 20100401
  3. PREDNISOLONE [Concomitant]
     Indication: PROSTATE CANCER

REACTIONS (3)
  - CARDIAC FAILURE [None]
  - DISSEMINATED INTRAVASCULAR COAGULATION [None]
  - RESPIRATORY FAILURE [None]
